FAERS Safety Report 9457366 (Version 1)
Quarter: 2013Q3

REPORT INFORMATION
  Report Type: Spontaneous
  Country: US (occurrence: US)
  Receive Date: 20130814
  Receipt Date: 20130814
  Transmission Date: 20140515
  Serious: Yes (Life-Threatening, Hospitalization)
  Sender: FDA-Public Use
  Company Number: PHEH2013US017106

PATIENT
  Age: 89 Year
  Sex: Female
  Weight: 72.56 kg

DRUGS (3)
  1. DIOVAN [Suspect]
     Dosage: UNK UKN, UNK
  2. XARELTO [Suspect]
     Indication: CEREBROVASCULAR ACCIDENT PROPHYLAXIS
     Dosage: 1 DF(15MG), A DAY
     Route: 048
     Dates: start: 201303
  3. XANAX [Concomitant]
     Indication: ANXIETY
     Dosage: 2 DF(0.5MG), A DAY
     Route: 048
     Dates: start: 1985

REACTIONS (7)
  - Feeling abnormal [Not Recovered/Not Resolved]
  - Transient ischaemic attack [Recovered/Resolved]
  - Disorientation [Unknown]
  - Dizziness [Unknown]
  - Decreased appetite [Not Recovered/Not Resolved]
  - Asthenia [Not Recovered/Not Resolved]
  - Hypotension [Not Recovered/Not Resolved]
